FAERS Safety Report 7923891-6 (Version None)
Quarter: 2011Q4

REPORT INFORMATION
  Report Type: 
  Country: None (occurrence: None)
  Receive Date: 20111117
  Receipt Date: 20110210
  Transmission Date: 20120403
  Serious: No
  Sender: FDA-Public Use
  Company Number: US-AMGEN-USASP2011007986

PATIENT
  Sex: Female

DRUGS (3)
  1. ENBREL [Suspect]
     Indication: PSORIASIS
  2. ENBREL [Suspect]
     Indication: RHEUMATOID ARTHRITIS
     Dosage: 50 MG, QWK
     Dates: start: 20081216, end: 20101201
  3. HUMIRA [Concomitant]

REACTIONS (6)
  - DRUG EFFECT DECREASED [None]
  - ARTHRALGIA [None]
  - PAIN [None]
  - OEDEMA PERIPHERAL [None]
  - INJECTION SITE HAEMATOMA [None]
  - PSORIASIS [None]
